FAERS Safety Report 16299551 (Version 1)
Quarter: 2019Q2

REPORT INFORMATION
  Report Type: Spontaneous
  Country: IT (occurrence: IT)
  Receive Date: 20190510
  Receipt Date: 20190510
  Transmission Date: 20190711
  Serious: Yes (Life-Threatening, Other)
  Sender: FDA-Public Use
  Company Number: IT-ACCORD-126803

PATIENT
  Age: 70 Year
  Sex: Male

DRUGS (2)
  1. FUROSEMIDE. [Suspect]
     Active Substance: FUROSEMIDE
     Indication: FLUID OVERLOAD
     Dosage: HIGH DOSE, LOOP DIURETICS
     Route: 042
  2. NITROPRUSSIDE [Suspect]
     Active Substance: NITROPRUSSIDE
     Indication: FLUID OVERLOAD

REACTIONS (4)
  - Condition aggravated [Recovering/Resolving]
  - Drug ineffective [Unknown]
  - Hypotension [Recovering/Resolving]
  - Renal impairment [Recovering/Resolving]
